FAERS Safety Report 19061462 (Version 1)
Quarter: 2021Q1

REPORT INFORMATION
  Report Type: Spontaneous
  Country: IN (occurrence: IN)
  Receive Date: 20210325
  Receipt Date: 20210325
  Transmission Date: 20210420
  Serious: Yes (Hospitalization, Other)
  Sender: FDA-Public Use
  Company Number: IN-ALLERGAN-2112231US

PATIENT
  Sex: Male

DRUGS (11)
  1. FLUOXETINE HCL UNK [Suspect]
     Active Substance: FLUOXETINE HYDROCHLORIDE
     Indication: OBSESSIVE-COMPULSIVE DISORDER
     Dosage: 80 MG, QD
  2. CLOZAPINE. [Interacting]
     Active Substance: CLOZAPINE
     Dosage: 125 MG, QD
  3. AMISULPRIDE [Interacting]
     Active Substance: AMISULPRIDE
     Indication: SCHIZOPHRENIA
     Dosage: 137.5 MG, QD
  4. ARIPIPRAZOLE. [Concomitant]
     Active Substance: ARIPIPRAZOLE
     Dosage: 10 MG, QD
  5. CLONAZEPAM. [Concomitant]
     Active Substance: CLONAZEPAM
     Indication: ANXIETY
     Dosage: 0.75 MG, QD
  6. CLOZAPINE. [Interacting]
     Active Substance: CLOZAPINE
     Indication: SCHIZOPHRENIA
     Dosage: 125 MG, QD
  7. ATENOLOL. [Concomitant]
     Active Substance: ATENOLOL
     Indication: SINUS TACHYCARDIA
     Dosage: 25 MG, QD
  8. CLOZAPINE. [Interacting]
     Active Substance: CLOZAPINE
     Dosage: 12.5 MG, QD
  9. AMISULPRIDE [Interacting]
     Active Substance: AMISULPRIDE
     Dosage: 12.5 MG, QD
  10. CLOZAPINE. [Interacting]
     Active Substance: CLOZAPINE
     Dosage: 137.5 MG, QD
  11. ARIPIPRAZOLE. [Concomitant]
     Active Substance: ARIPIPRAZOLE
     Dosage: 30 MG, QD

REACTIONS (5)
  - Muscle twitching [Recovered/Resolved]
  - Drug interaction [Unknown]
  - Generalised tonic-clonic seizure [Recovered/Resolved]
  - Off label use [Unknown]
  - Dysphemia [Recovered/Resolved]
